FAERS Safety Report 17959901 (Version 1)
Quarter: 2020Q2

REPORT INFORMATION
  Report Type: Spontaneous
  Country: CN (occurrence: CN)
  Receive Date: 20200630
  Receipt Date: 20200630
  Transmission Date: 20200714
  Serious: Yes (Other)
  Sender: FDA-Public Use
  Company Number: CN-SUN PHARMACEUTICAL INDUSTRIES LTD-2020R1-251580

PATIENT
  Age: 55 Year
  Sex: Female

DRUGS (3)
  1. CARBOPLATIN. [Suspect]
     Active Substance: CARBOPLATIN
     Indication: CERVIX CARCINOMA STAGE IV
     Dosage: 400 MILLIGRAM D2
     Route: 065
     Dates: start: 20181116, end: 20190316
  2. PEMBROLIZUMAB. [Suspect]
     Active Substance: PEMBROLIZUMAB
     Indication: CERVIX CARCINOMA STAGE IV
     Dosage: 100 MILLIGRAM D1
     Route: 065
     Dates: start: 20181115, end: 20190315
  3. NAB-PACLITAXEL [Suspect]
     Active Substance: PACLITAXEL
     Indication: CERVIX CARCINOMA STAGE IV
     Dosage: 300 MILLIGRAM D2
     Route: 065
     Dates: start: 20181116, end: 20190316

REACTIONS (4)
  - Therapeutic product effect incomplete [Unknown]
  - Bone marrow failure [Unknown]
  - Platelet count decreased [Unknown]
  - White blood cell count decreased [Unknown]

NARRATIVE: CASE EVENT DATE: 2019
